FAERS Safety Report 20707568 (Version 1)
Quarter: 2022Q2

REPORT INFORMATION
  Report Type: Spontaneous
  Country: IT (occurrence: IT)
  Receive Date: 20220413
  Receipt Date: 20220413
  Transmission Date: 20220721
  Serious: Yes (Other)
  Sender: FDA-Public Use
  Company Number: IT-009507513-2204ITA003648

PATIENT
  Age: 73 Year
  Sex: Female

DRUGS (2)
  1. BRIDION [Suspect]
     Active Substance: SUGAMMADEX
     Dates: start: 20220406, end: 20220406
  2. CORTISONE [Concomitant]
     Active Substance: CORTISONE
     Dosage: 4 MILLIGRAM
     Dates: start: 20220406, end: 20220406

REACTIONS (4)
  - Poor peripheral circulation [Recovered/Resolved]
  - Anaphylactic reaction [Recovered/Resolved]
  - Rash [Recovered/Resolved]
  - Blood pressure decreased [Recovered/Resolved]

NARRATIVE: CASE EVENT DATE: 20220406
